FAERS Safety Report 17885515 (Version 2)
Quarter: 2020Q3

REPORT INFORMATION
  Report Type: Spontaneous
  Country: US (occurrence: US)
  Receive Date: 20200611
  Receipt Date: 20200709
  Transmission Date: 20201103
  Serious: No
  Sender: FDA-Public Use
  Company Number: US-ASTRAZENECA-2020SE65512

PATIENT
  Age: 21703 Day
  Sex: Female

DRUGS (3)
  1. DOXYCYLINE [Concomitant]
     Active Substance: DOXYCYCLINE
     Indication: COVID-19
     Dosage: UNKNOWN
     Route: 065
  2. SYMBICORT [Suspect]
     Active Substance: BUDESONIDE\FORMOTEROL FUMARATE DIHYDRATE
     Indication: COVID-19
     Dosage: 160/4.5 MCG, TWO PUFFS TWO TIMES A DAY
     Route: 055
     Dates: start: 20200512
  3. ZITHROMAX [Concomitant]
     Active Substance: AZITHROMYCIN DIHYDRATE
     Indication: COVID-19
     Dosage: UNKNOWN
     Route: 065

REACTIONS (5)
  - Product use in unapproved indication [Not Recovered/Not Resolved]
  - Chest discomfort [Unknown]
  - Drug delivery system issue [Unknown]
  - Intentional device misuse [Not Recovered/Not Resolved]
  - Product use issue [Unknown]

NARRATIVE: CASE EVENT DATE: 20200512
